FAERS Safety Report 15698079 (Version 1)
Quarter: 2018Q4

REPORT INFORMATION
  Report Type: Spontaneous
  Country: FR (occurrence: FR)
  Receive Date: 20181207
  Receipt Date: 20181207
  Transmission Date: 20190205
  Serious: Yes (Hospitalization)
  Sender: FDA-Public Use
  Company Number: FR-SUN PHARMACEUTICAL INDUSTRIES LTD-2018RR-192968

PATIENT
  Age: 17 Year
  Sex: Female

DRUGS (5)
  1. XANAX [Suspect]
     Active Substance: ALPRAZOLAM
     Indication: SUICIDE ATTEMPT
     Dosage: 4 DF, IN TOTAL
     Route: 048
     Dates: start: 20180916, end: 20180916
  2. SPIFEN [Suspect]
     Active Substance: IBUPROFEN
     Indication: SUICIDE ATTEMPT
     Dosage: 12 CP ; IN TOTAL
     Route: 048
     Dates: start: 20180916, end: 20180916
  3. PARACETAMOL [Suspect]
     Active Substance: ACETAMINOPHEN
     Indication: SUICIDE ATTEMPT
     Dosage: 6 CP ; IN TOTAL
     Route: 048
     Dates: start: 20180916, end: 20180916
  4. DAFALGAN [Suspect]
     Active Substance: ACETAMINOPHEN
     Indication: SUICIDE ATTEMPT
     Dosage: 10 CP ; IN TOTAL
     Route: 048
     Dates: start: 20180916, end: 20180916
  5. STRESAM [Suspect]
     Active Substance: ETIFOXINE
     Indication: SUICIDE ATTEMPT
     Dosage: 20 CP ; IN TOTAL
     Route: 048
     Dates: start: 20180916, end: 20180916

REACTIONS (4)
  - Somnolence [Recovered/Resolved]
  - Toxicity to various agents [Recovered/Resolved]
  - Nausea [Recovered/Resolved]
  - Vomiting [Recovered/Resolved]

NARRATIVE: CASE EVENT DATE: 20180916
